FAERS Safety Report 9710700 (Version 2)
Quarter: 2013Q4

REPORT INFORMATION
  Report Type: Spontaneous
  Country: IT (occurrence: IT)
  Receive Date: 20131126
  Receipt Date: 20131202
  Transmission Date: 20140711
  Serious: Yes (Life-Threatening)
  Sender: FDA-Public Use
  Company Number: IT-JNJFOC-20131113775

PATIENT
  Age: 17 Year
  Sex: Female

DRUGS (6)
  1. TOPAMAX [Suspect]
     Indication: PRODUCT USED FOR UNKNOWN INDICATION
     Route: 048
  2. TOPAMAX [Suspect]
     Indication: PRODUCT USED FOR UNKNOWN INDICATION
     Route: 048
     Dates: start: 20130118, end: 20130118
  3. SERENASE [Concomitant]
     Indication: ACUTE PSYCHOSIS
     Route: 048
  4. ENTACT [Concomitant]
     Indication: DEPRESSION
     Route: 048
  5. RIVOTRIL [Concomitant]
     Indication: EPILEPSY
     Route: 048
  6. SEROQUEL [Concomitant]
     Indication: ACUTE PSYCHOSIS
     Route: 048

REACTIONS (5)
  - Drug abuse [Recovered/Resolved]
  - Confusional state [Recovered/Resolved]
  - Agitation [Recovered/Resolved]
  - Intentional overdose [Recovered/Resolved]
  - Repetitive speech [Recovered/Resolved]
